FAERS Safety Report 5389737-8 (Version None)
Quarter: 2007Q3

REPORT INFORMATION
  Report Type: 
  Country: None (occurrence: None)
  Receive Date: 20070713
  Receipt Date: 20070705
  Transmission Date: 20080115
  Serious: Yes (Life-Threatening)
  Sender: FDA-Public Use
  Company Number: 2006-146835-NL

PATIENT
  Age: 90 Year
  Sex: Female

DRUGS (5)
  1. MIRTAZAPINE [Suspect]
     Indication: DEPRESSION
     Dosage: 30 MG
     Route: 048
     Dates: start: 20060525, end: 20060716
  2. ADCAL-D3 [Concomitant]
  3. LANSOPRAZOLE [Concomitant]
  4. ACETAMINOPHEN [Concomitant]
  5. RISEDRONATE SODIUM [Concomitant]

REACTIONS (5)
  - LOWER RESPIRATORY TRACT INFECTION [None]
  - MALAISE [None]
  - NEUTROPENIA [None]
  - PYREXIA [None]
  - SEPSIS [None]
